FAERS Safety Report 4308078-0 (Version None)
Quarter: 2004Q1

REPORT INFORMATION
  Report Type: 
  Country: None (occurrence: None)
  Receive Date: 20040301
  Receipt Date: 20030429
  Transmission Date: 20041129
  Serious: No
  Sender: FDA-Public Use
  Company Number: US-BRISTOL-MYERS SQUIBB COMPANY-12258166

PATIENT
  Age: 54 Year
  Sex: Female
  Weight: 73 kg

DRUGS (3)
  1. GLUCOPHAGE [Suspect]
     Indication: DIABETES MELLITUS
     Dosage: DURATION OF THERAPY:  ^5-6 YEARS OFF AND ON^
     Route: 048
  2. ACTOS [Concomitant]
  3. GLYBURIDE [Concomitant]

REACTIONS (1)
  - DIARRHOEA [None]
